FAERS Safety Report 4758009-4 (Version None)
Quarter: 2005Q3

REPORT INFORMATION
  Report Type: 
  Country: None (occurrence: None)
  Receive Date: 20050830
  Receipt Date: 20050817
  Transmission Date: 20060218
  Serious: Yes (Death, Hospitalization, Other)
  Sender: FDA-Public Use
  Company Number: M03-341-066

PATIENT
  Age: 53 Year
  Sex: Male
  Weight: 81 kg

DRUGS (6)
  1. VELCADE [Suspect]
     Indication: MULTIPLE MYELOMA
     Dosage: INTRAVENOUS
     Route: 042
     Dates: start: 20030708, end: 20030807
  2. PROCRIT [Concomitant]
  3. PREDNISONE [Concomitant]
  4. MAGNESIUM [Concomitant]
  5. POTASSIUM [Concomitant]
  6. PRILOSEC [Concomitant]

REACTIONS (43)
  - ACTIVATED PARTIAL THROMBOPLASTIN TIME PROLONGED [None]
  - ASPARTATE AMINOTRANSFERASE INCREASED [None]
  - ASTHENIA [None]
  - BASE EXCESS DECREASED [None]
  - BIOPSY SKIN ABNORMAL [None]
  - BLOOD BICARBONATE DECREASED [None]
  - BLOOD BILIRUBIN INCREASED [None]
  - BLOOD GLUCOSE INCREASED [None]
  - BLOOD PH DECREASED [None]
  - BLOOD SODIUM DECREASED [None]
  - CARBON DIOXIDE DECREASED [None]
  - CARDIAC TAMPONADE [None]
  - CARDIOMEGALY [None]
  - CONDUCTION DISORDER [None]
  - DEHYDRATION [None]
  - DYSPNOEA EXACERBATED [None]
  - EJECTION FRACTION DECREASED [None]
  - GALLBLADDER DISORDER [None]
  - GALLBLADDER POLYP [None]
  - HEART RATE INCREASED [None]
  - HYPERCOAGULATION [None]
  - INTERNATIONAL NORMALISED RATIO INCREASED [None]
  - LIVEDO RETICULARIS [None]
  - LIVER DISORDER [None]
  - LUNG INFILTRATION [None]
  - MALIGNANT NEOPLASM PROGRESSION [None]
  - MULTIPLE MYELOMA [None]
  - NAUSEA [None]
  - PALLOR [None]
  - PANCYTOPENIA [None]
  - PCO2 INCREASED [None]
  - PERICARDIAL EFFUSION [None]
  - PERICARDIAL HAEMORRHAGE [None]
  - PERICARDITIS [None]
  - PLASMACYTOMA [None]
  - PO2 INCREASED [None]
  - PROTHROMBIN TIME PROLONGED [None]
  - RASH [None]
  - RENAL FAILURE [None]
  - RESPIRATORY RATE INCREASED [None]
  - SKIN LESION [None]
  - THERAPY NON-RESPONDER [None]
  - VOMITING [None]
